FAERS Safety Report 9496411 (Version 1)
Quarter: 2013Q3

REPORT INFORMATION
  Report Type: Spontaneous
  Country: IT (occurrence: IT)
  Receive Date: 20130822
  Receipt Date: 20130822
  Transmission Date: 20140515
  Serious: Yes (Hospitalization)
  Sender: FDA-Public Use
  Company Number: PHHY2013IT088250

PATIENT
  Sex: Female

DRUGS (3)
  1. FUROSEMIDE [Suspect]
     Dosage: 1 DF, QD
     Route: 048
     Dates: start: 20120414, end: 20130413
  2. ENALAPRIL [Suspect]
     Dosage: 10 MG, QD
     Route: 048
     Dates: start: 20120414, end: 20130413
  3. ACETYLSALICYLIC ACID [Concomitant]

REACTIONS (2)
  - Dysarthria [Not Recovered/Not Resolved]
  - Syncope [Not Recovered/Not Resolved]
